FAERS Safety Report 9410381 (Version 1)
Quarter: 2013Q3

REPORT INFORMATION
  Report Type: Spontaneous
  Country: US (occurrence: US)
  Receive Date: 20130719
  Receipt Date: 20130719
  Transmission Date: 20140515
  Serious: Yes (Other)
  Sender: FDA-Public Use
  Company Number: US-GLAXOSMITHKLINE-A1032665A

PATIENT
  Age: 59 Year
  Sex: Female

DRUGS (17)
  1. ADVAIR [Suspect]
     Indication: ASTHMA
     Dosage: 1PUFF TWICE PER DAY
     Route: 055
     Dates: start: 2001, end: 20130710
  2. SPIRIVA [Concomitant]
  3. QVAR [Concomitant]
  4. PROAIR HFA [Concomitant]
  5. METOPROLOL [Concomitant]
  6. GLIPIZIDE [Concomitant]
  7. SIMVASTATIN [Concomitant]
  8. SINGULAIR [Concomitant]
  9. METFORMIN [Concomitant]
  10. ZANTAC [Concomitant]
  11. LEXAPRO [Concomitant]
  12. ASPIRIN LOW DOSE [Concomitant]
  13. IMDUR [Concomitant]
  14. ANTIBIOTIC [Concomitant]
  15. IBUPROFEN [Concomitant]
  16. PLAVIX [Concomitant]
  17. BYSTOLIC [Concomitant]

REACTIONS (10)
  - Mental impairment [Not Recovered/Not Resolved]
  - Headache [Not Recovered/Not Resolved]
  - Vision blurred [Not Recovered/Not Resolved]
  - Eyelid function disorder [Not Recovered/Not Resolved]
  - Throat irritation [Not Recovered/Not Resolved]
  - Dysphagia [Not Recovered/Not Resolved]
  - Ear pain [Not Recovered/Not Resolved]
  - Tongue disorder [Not Recovered/Not Resolved]
  - Glossitis [Not Recovered/Not Resolved]
  - Dyspnoea [Not Recovered/Not Resolved]
